FAERS Safety Report 6162787-X (Version None)
Quarter: 2009Q2

REPORT INFORMATION
  Report Type: 
  Country: None (occurrence: None)
  Receive Date: 20090421
  Receipt Date: 20080714
  Transmission Date: 20091009
  Serious: No
  Sender: FDA-Public Use
  Company Number: US-ASTRAZENECA-2008UW14049

PATIENT
  Age: 77 Year
  Sex: Female
  Weight: 49.9 kg

DRUGS (3)
  1. TOPROL-XL [Suspect]
     Indication: HYPERTENSION
     Route: 048
  2. ARTHROTEC [Concomitant]
  3. LIPITOR [Concomitant]

REACTIONS (3)
  - ALOPECIA [None]
  - BODY HEIGHT DECREASED [None]
  - HEART RATE DECREASED [None]
